FAERS Safety Report 10624901 (Version 1)
Quarter: 2014Q4

REPORT INFORMATION
  Report Type: Spontaneous
  Country: US (occurrence: US)
  Receive Date: 20141204
  Receipt Date: 20141204
  Transmission Date: 20150529
  Serious: Yes (Death, Hospitalization, Other)
  Sender: FDA-Public Use
  Company Number: US-SUN PHARMACEUTICAL INDUSTRIES LTD-2014SUN02689

PATIENT
  Age: 46 Year
  Sex: Female

DRUGS (1)
  1. MINOCYCLINE HYDROCHLORIDE CAPSULES USP, 50 MG [Suspect]
     Active Substance: MINOCYCLINE HYDROCHLORIDE
     Indication: DERMATITIS
     Dosage: UNK
     Route: 065

REACTIONS (4)
  - Myocarditis [Unknown]
  - Multi-organ failure [Fatal]
  - Drug reaction with eosinophilia and systemic symptoms [Unknown]
  - Eosinophilic myocarditis [Unknown]
